FAERS Safety Report 4658143-3 (Version None)
Quarter: 2005Q2

REPORT INFORMATION
  Report Type: 
  Country: None (occurrence: None)
  Receive Date: 20050504
  Receipt Date: 20040603
  Transmission Date: 20051028
  Serious: Yes (Other)
  Sender: FDA-Public Use
  Company Number: PHEH2004US06163

PATIENT
  Age: 54 Year
  Sex: Female

DRUGS (4)
  1. DIOVAN HCT [Suspect]
     Indication: HYPERTENSION
     Dosage: ONE TABLET DAILY, DOUBLE PM, ORAL
     Route: 048
     Dates: start: 20030101
  2. ATENOLOL [Concomitant]
  3. SYNTHROID [Concomitant]
  4. VITAMINS NOS (VITAMINS NOS) [Concomitant]

REACTIONS (2)
  - BLOOD PRESSURE INCREASED [None]
  - OEDEMA PERIPHERAL [None]
